FAERS Safety Report 18418266 (Version 2)
Quarter: 2021Q2

REPORT INFORMATION
  Report Type: Spontaneous
  Country: AR (occurrence: AR)
  Receive Date: 20201023
  Receipt Date: 20210426
  Transmission Date: 20210717
  Serious: Yes (Other)
  Sender: FDA-Public Use
  Company Number: AR-AMGEN-ARGSP2020171045

PATIENT
  Age: 68 Year
  Sex: Male

DRUGS (2)
  1. ENBREL [Suspect]
     Active Substance: ETANERCEPT
     Indication: RHEUMATOID ARTHRITIS
     Dosage: 50 MG, WEEKLY (1 DOSE PER WEEK)
     Route: 065
     Dates: start: 20150706
  2. ENBREL [Suspect]
     Active Substance: ETANERCEPT
     Dosage: 50 MG, EVERY OTHER WEEK
     Route: 065
     Dates: start: 2019

REACTIONS (4)
  - Intentional product misuse [Unknown]
  - Cerebrovascular accident [Unknown]
  - Dysgraphia [Unknown]
  - Malaise [Unknown]

NARRATIVE: CASE EVENT DATE: 2019
